FAERS Safety Report 8760903 (Version 4)
Quarter: 2012Q4

REPORT INFORMATION
  Report Type: 
  Country: JP (occurrence: JP)
  Receive Date: 20120830
  Receipt Date: 20121026
  Transmission Date: 20130627
  Serious: Yes (Hospitalization)
  Sender: FDA-Public Use
  Company Number: JP-JNJFOC-20120812893

PATIENT
  Age: 77 Year
  Sex: Male
  Weight: 57 kg

DRUGS (18)
  1. REMINYL [Suspect]
     Indication: DEMENTIA
     Route: 048
     Dates: start: 20120702, end: 20120727
  2. MEMANTINE HYDROCHLORIDE [Suspect]
     Indication: DEMENTIA
     Route: 048
     Dates: start: 20120702
  3. WARFARIN POTASSIUM [Suspect]
     Indication: ATRIAL FIBRILLATION
     Route: 048
     Dates: start: 20120720
  4. WARFARIN POTASSIUM [Suspect]
     Indication: ATRIAL FIBRILLATION
     Route: 048
     Dates: start: 20120627
  5. WARFARIN POTASSIUM [Suspect]
     Indication: ATRIAL FIBRILLATION
     Route: 048
     Dates: start: 20120531
  6. WARFARIN POTASSIUM [Suspect]
     Indication: ATRIAL FIBRILLATION
     Route: 048
     Dates: start: 20120724
  7. WARFARIN POTASSIUM [Suspect]
     Indication: ATRIAL FIBRILLATION
     Route: 048
     Dates: start: 20120803
  8. WARFARIN POTASSIUM [Suspect]
     Indication: VENTRICULAR FIBRILLATION
     Route: 048
     Dates: start: 20120803
  9. WARFARIN POTASSIUM [Suspect]
     Indication: VENTRICULAR FIBRILLATION
     Route: 048
     Dates: start: 20120724
  10. WARFARIN POTASSIUM [Suspect]
     Indication: VENTRICULAR FIBRILLATION
     Route: 048
     Dates: start: 20120720
  11. WARFARIN POTASSIUM [Suspect]
     Indication: VENTRICULAR FIBRILLATION
     Route: 048
     Dates: start: 20120627
  12. WARFARIN POTASSIUM [Suspect]
     Indication: VENTRICULAR FIBRILLATION
     Route: 048
     Dates: start: 20120531
  13. JANUVIA [Concomitant]
     Route: 048
     Dates: start: 20120607
  14. SPIRONOLACTONE [Concomitant]
     Route: 048
     Dates: start: 20120531
  15. YOKUKAN-SAN [Concomitant]
     Dosage: 1 DFx 1 per 1 day
     Route: 048
     Dates: start: 20120626
  16. BLOPRESS [Concomitant]
     Route: 048
     Dates: start: 20120531
  17. MYSLEE [Concomitant]
     Route: 048
     Dates: start: 20120625
  18. LASIX [Concomitant]
     Route: 048
     Dates: start: 20120531

REACTIONS (1)
  - International normalised ratio abnormal [Recovered/Resolved]
